FAERS Safety Report 9384522 (Version 1)
Quarter: 2013Q3

REPORT INFORMATION
  Report Type: Report from Study
  Country: BR (occurrence: BR)
  Receive Date: 20130705
  Receipt Date: 20130705
  Transmission Date: 20140515
  Serious: Yes (Death, Hospitalization, Other)
  Sender: FDA-Public Use
  Company Number: PHHY2013BR070095

PATIENT
  Age: 81 Year
  Sex: Male
  Weight: 92 kg

DRUGS (13)
  1. EXELON [Suspect]
     Indication: DEMENTIA ALZHEIMER^S TYPE
     Route: 048
  2. EXELON PATCH [Suspect]
     Indication: DEMENTIA ALZHEIMER^S TYPE
     Dosage: 18 MG, (10 CM2) DAILY
     Route: 062
  3. EBIX [Concomitant]
     Indication: DEMENTIA ALZHEIMER^S TYPE
     Dosage: 2 DF (10 MG), QD
     Route: 048
  4. ASPIRINA PREVENT [Concomitant]
     Indication: CARDIAC DISORDER
     Dosage: 1 DF (100 MG), QD
     Route: 048
  5. CARDILOL//ATENOLOL [Concomitant]
     Indication: BLOOD PRESSURE ABNORMAL
     Dosage: 2 DF (10 MG), QD
     Route: 048
  6. OMEPRAZOLE [Concomitant]
     Indication: PROPHYLAXIS
     Dosage: 1 DF (20 MG), QD
     Route: 048
  7. LEXAPRO [Concomitant]
     Dosage: 2 DF, IN THE MORNING
     Route: 048
  8. LASIX [Concomitant]
     Indication: FLUID RETENTION
     Dosage: 1 DF, IN THE MORNING
     Route: 048
  9. BUFERIN [Concomitant]
     Indication: BLOOD DISORDER
     Dosage: 1 DF, IN THE AFTERNOON
     Route: 048
  10. ZYLORIC [Concomitant]
     Indication: URINARY TRACT DISORDER
     Dosage: 1 DF, QD
     Route: 048
  11. ZYLORIC [Concomitant]
     Indication: PROSTATIC DISORDER
  12. SEROQUEL [Concomitant]
     Indication: AGITATION
     Dosage: 1 DF (15 MG), AT NIGHT
     Route: 048
  13. AVODART [Concomitant]
     Dosage: 1 DF, AT NIGHT
     Route: 048

REACTIONS (5)
  - Bacteraemia [Fatal]
  - Dyspnoea [Fatal]
  - Cardiac arrest [Fatal]
  - Multi-organ failure [Fatal]
  - Pulmonary oedema [Recovered/Resolved]
